FAERS Safety Report 5881408-4 (Version None)
Quarter: 2008Q3

REPORT INFORMATION
  Report Type: 
  Country: None (occurrence: None)
  Receive Date: 20080912
  Receipt Date: 20080630
  Transmission Date: 20090109
  Serious: No
  Sender: FDA-Public Use
  Company Number: US-ABBOTT-08P-163-0460213-00

PATIENT
  Sex: Female
  Weight: 87.622 kg

DRUGS (10)
  1. HUMIRA [Suspect]
     Indication: CROHN'S DISEASE
     Route: 058
     Dates: start: 20080204
  2. METOPROLOL TARTRATE [Concomitant]
     Indication: CARDIAC DISORDER
     Route: 048
     Dates: start: 20000101
  3. TRIAMTERENE [Concomitant]
     Indication: CARDIAC DISORDER
     Route: 048
     Dates: start: 20000101
  4. BUPROPION HCL [Concomitant]
     Indication: DEPRESSION
     Route: 048
     Dates: start: 20050101
  5. ESZOPICLONE [Concomitant]
     Indication: INSOMNIA
     Route: 048
  6. TRAMADOL HCL [Concomitant]
     Indication: ARTHRITIS
     Route: 048
     Dates: start: 20080101
  7. ESOMEPRAZOLE MAGNESIUM [Concomitant]
     Indication: DRUG USE FOR UNKNOWN INDICATION
     Route: 048
  8. MESALAMINE [Concomitant]
     Indication: CROHN'S DISEASE
     Dosage: 4 CAPSULES TWICE DAILY
     Route: 048
     Dates: start: 20070101
  9. FOLIC ACID [Concomitant]
     Indication: DRUG USE FOR UNKNOWN INDICATION
     Route: 048
     Dates: start: 20070101
  10. CLONAZEPAM [Concomitant]
     Indication: VERTIGO
     Dates: start: 19990101

REACTIONS (4)
  - ARTHRALGIA [None]
  - FALL [None]
  - FATIGUE [None]
  - OPEN WOUND [None]
